FAERS Safety Report 4389924-1 (Version None)
Quarter: 2004Q2

REPORT INFORMATION
  Report Type: 
  Country: None (occurrence: None)
  Receive Date: 20040630
  Receipt Date: 20040630
  Transmission Date: 20050107
  Serious: Yes (Hospitalization)
  Sender: FDA-Public Use
  Company Number: None

PATIENT
  Age: 79 Year
  Sex: Male
  Weight: 88 kg

DRUGS (4)
  1. GEMCITABINE [Suspect]
     Indication: RENAL CELL CARCINOMA STAGE UNSPECIFIED
     Dosage: 1000 MG/M2
     Dates: start: 20040615
  2. GEMCITABINE [Suspect]
     Indication: RENAL CELL CARCINOMA STAGE UNSPECIFIED
     Dosage: 1000 MG/M2
     Dates: start: 20040622
  3. IRINOTECAN [Suspect]
     Indication: RENAL CELL CARCINOMA STAGE UNSPECIFIED
     Dosage: 100 MG/M2
     Dates: start: 20040615
  4. IRINOTECAN [Suspect]
     Indication: RENAL CELL CARCINOMA STAGE UNSPECIFIED
     Dosage: 100 MG/M2
     Dates: start: 20040622

REACTIONS (6)
  - DEHYDRATION [None]
  - DIARRHOEA [None]
  - DRUG TOXICITY [None]
  - FATIGUE [None]
  - NAUSEA [None]
  - VOMITING [None]
